FAERS Safety Report 15111127 (Version 2)
Quarter: 2018Q3

REPORT INFORMATION
  Report Type: Spontaneous
  Country: JP (occurrence: JP)
  Receive Date: 20180705
  Receipt Date: 20180831
  Transmission Date: 20181010
  Serious: Yes (Disabling, Other)
  Sender: FDA-Public Use
  Company Number: JP-PFIZER INC-2017236691

PATIENT
  Age: 68 Year
  Sex: Male
  Weight: 56.5 kg

DRUGS (11)
  1. PARIET [Concomitant]
     Active Substance: RABEPRAZOLE SODIUM
     Indication: GASTRIC ULCER
     Dosage: 10 MG, 1X/DAY
     Route: 048
  2. BOSULIF [Suspect]
     Active Substance: BOSUTINIB MONOHYDRATE
     Dosage: 300 MG, DAILY
     Dates: start: 20180104, end: 20180307
  3. PITAVASTATIN. [Concomitant]
     Active Substance: PITAVASTATIN CALCIUM
     Indication: ANGINA PECTORIS
     Dosage: 2 MG, 1X/DAY
     Route: 048
  4. HERBESSER [Concomitant]
     Active Substance: DILTIAZEM HYDROCHLORIDE
     Indication: ANGINA PECTORIS
     Dosage: 100 MG, 2X/DAY
     Route: 048
  5. LOPEMIN [Suspect]
     Active Substance: LOPERAMIDE HYDROCHLORIDE
     Indication: DIARRHOEA
     Dosage: UNK
  6. MIYA?BM [Concomitant]
     Active Substance: CLOSTRIDIUM BUTYRICUM SPORES STRAIN M-55
     Indication: DIARRHOEA
     Dosage: 20 MG, 3X/DAY
     Route: 048
  7. NICORANDIL [Concomitant]
     Active Substance: NICORANDIL
     Indication: ANGINA PECTORIS
     Dosage: 5 MG, 3X/DAY
     Route: 048
  8. BOSULIF [Suspect]
     Active Substance: BOSUTINIB MONOHYDRATE
     Indication: CHRONIC MYELOID LEUKAEMIA
     Dosage: 200 MG, DAILY
     Route: 048
     Dates: start: 20170525
  9. EFFIENT [Concomitant]
     Active Substance: PRASUGREL HYDROCHLORIDE
     Indication: ANGINA PECTORIS
     Dosage: 3.75 G, 1X/DAY
     Route: 048
  10. BOSULIF [Suspect]
     Active Substance: BOSUTINIB MONOHYDRATE
     Dosage: 200 MG, DAILY
  11. ULCERLMIN [Concomitant]
     Active Substance: SUCRALFATE
     Indication: GASTRIC ULCER
     Dosage: 1 G, 2X/DAY
     Route: 048

REACTIONS (13)
  - Pericardial effusion [Recovering/Resolving]
  - Weight decreased [Unknown]
  - Chest discomfort [Unknown]
  - Peripheral swelling [Recovering/Resolving]
  - Malaise [Recovered/Resolved]
  - Pleural effusion [Recovered/Resolved]
  - Decreased appetite [Recovered/Resolved]
  - Cardiac failure [Recovered/Resolved]
  - Oedema peripheral [Recovered/Resolved]
  - Constipation [Recovered/Resolved]
  - Dyspnoea [Unknown]
  - Fatigue [Recovered/Resolved]
  - Diarrhoea [Recovered/Resolved]

NARRATIVE: CASE EVENT DATE: 201802
